FAERS Safety Report 25161031 (Version 3)
Quarter: 2025Q2

REPORT INFORMATION
  Report Type: Report from Study
  Country: US (occurrence: US)
  Receive Date: 20250404
  Receipt Date: 20250424
  Transmission Date: 20250717
  Serious: Yes (Hospitalization, Other)
  Sender: ALEXION PHARMACEUTICALS
  Company Number: US-AstraZeneca-CH-00838257A

PATIENT
  Age: 47 Year
  Weight: 81.179 kg

DRUGS (6)
  1. DAPAGLIFLOZIN [Suspect]
     Active Substance: DAPAGLIFLOZIN
     Dosage: UNK UNK, QD
     Route: 065
  2. AMIODARONE HYDROCHLORIDE [Concomitant]
     Active Substance: AMIODARONE HYDROCHLORIDE
     Dosage: 200 MILLIGRAM, QD
  3. ENTRESTO [Concomitant]
     Active Substance: SACUBITRIL\VALSARTAN
  4. FARXIGA [Concomitant]
     Active Substance: DAPAGLIFLOZIN PROPANEDIOL
     Dosage: 10 MILLIGRAM, QD
  5. FUROSEMIDE [Concomitant]
     Active Substance: FUROSEMIDE
     Dosage: 40 MILLIGRAM, QD
  6. SPIRONOLACTONE [Concomitant]
     Active Substance: SPIRONOLACTONE
     Dosage: 25 MILLIGRAM, QD

REACTIONS (31)
  - Seizure [Unknown]
  - Acute kidney injury [Unknown]
  - Myocardial infarction [Unknown]
  - Ventricular tachycardia [Unknown]
  - Chronic kidney disease [Unknown]
  - Cardiac failure [Unknown]
  - Cardiogenic shock [Unknown]
  - Pleuritic pain [Unknown]
  - Dyspnoea [Unknown]
  - Chest pain [Unknown]
  - Diarrhoea [Unknown]
  - Viral infection [Unknown]
  - Insurance issue [Unknown]
  - Oedema [Unknown]
  - Tricuspid valve incompetence [Unknown]
  - Ventricular arrhythmia [Unknown]
  - Weight increased [Unknown]
  - Epistaxis [Unknown]
  - Haemoptysis [Unknown]
  - Mitral valve disease [Unknown]
  - Cardiac output decreased [Unknown]
  - Hypotension [Unknown]
  - Mitral valve incompetence [Unknown]
  - Skin exfoliation [Unknown]
  - Dizziness [Unknown]
  - Loss of consciousness [Unknown]
  - Dyspnoea [Unknown]
  - Syncope [Unknown]
  - Left ventricular dysfunction [Unknown]
  - Inability to afford medication [Unknown]
  - Ejection fraction decreased [Unknown]
